FAERS Safety Report 8578757-8 (Version None)
Quarter: 2012Q3

REPORT INFORMATION
  Report Type: 
  Country: None (occurrence: None)
  Receive Date: 20120801
  Receipt Date: 20120801
  Transmission Date: 20120928
  Serious: No
  Sender: FDA-Public Use
  Company Number: None

PATIENT
  Sex: Female
  Weight: 68.4932 kg

DRUGS (1)
  1. SYNTHROID [Suspect]

REACTIONS (2)
  - LABORATORY TEST ABNORMAL [None]
  - PRODUCT SUBSTITUTION ISSUE [None]
